FAERS Safety Report 14198453 (Version 1)
Quarter: 2017Q4

REPORT INFORMATION
  Report Type: Spontaneous
  Country: US (occurrence: US)
  Receive Date: 20171117
  Receipt Date: 20171117
  Transmission Date: 20180321
  Serious: Yes (Hospitalization)
  Sender: FDA-Public Use
  Company Number: US-TAIHO ONCOLOGY INC-EU-2017-01421

PATIENT
  Age: 66 Year
  Sex: Female
  Weight: 108.7 kg

DRUGS (14)
  1. FENTANYL. [Concomitant]
     Active Substance: FENTANYL
     Dosage: 25MCG/HR
  2. FLONASE [Concomitant]
     Active Substance: FLUTICASONE PROPIONATE
     Dosage: NI
  3. ONDANSETRON [Concomitant]
     Active Substance: ONDANSETRON
  4. MAGNESIUM HYDROXIDE/SIMETICONE/ALUMINIUM HYDROXIDE [Concomitant]
     Dosage: NI
  5. PRAMIPEXOLE. [Concomitant]
     Active Substance: PRAMIPEXOLE
  6. LOMOTIL [Concomitant]
     Active Substance: ATROPINE SULFATE\DIPHENOXYLATE HYDROCHLORIDE
     Dosage: 2.5-0.025 MG
  7. LORAZEPAM. [Concomitant]
     Active Substance: LORAZEPAM
  8. LOVENOX [Concomitant]
     Active Substance: ENOXAPARIN SODIUM
     Dosage: 120MG/0.8ML
  9. POTASSIUM CHLORIDE. [Concomitant]
     Active Substance: POTASSIUM CHLORIDE
  10. CLONAZEPAM. [Concomitant]
     Active Substance: CLONAZEPAM
  11. OXYCODONE [Concomitant]
     Active Substance: OXYCODONE
  12. PREVACID [Concomitant]
     Active Substance: LANSOPRAZOLE
  13. LONSURF [Suspect]
     Active Substance: TIPIRACIL HYDROCHLORIDE\TRIFLURIDINE
     Indication: COLON CANCER
     Dosage: CYCLE 2
     Route: 048
     Dates: start: 20170822, end: 20171103
  14. COLACE [Concomitant]
     Active Substance: DOCUSATE SODIUM

REACTIONS (2)
  - Disease progression [Unknown]
  - Palmar-plantar erythrodysaesthesia syndrome [Recovered/Resolved]

NARRATIVE: CASE EVENT DATE: 2017
